FAERS Safety Report 10250963 (Version 1)
Quarter: 2014Q2

REPORT INFORMATION
  Report Type: Report from Study
  Country: MW (occurrence: MW)
  Receive Date: 20140620
  Receipt Date: 20140620
  Transmission Date: 20141212
  Serious: Yes (Other)
  Sender: FDA-Public Use
  Company Number: MW-ABBVIE-14P-100-1247188-00

PATIENT
  Age: 1 Day
  Sex: Female

DRUGS (4)
  1. ALUVIA [Suspect]
     Indication: MATERNAL EXPOSURE TIMING UNSPECIFIED
     Route: 064
  2. ALUVIA [Suspect]
     Route: 063
  3. EMTRICITABINE W/TENOFOVIR DISOPROXIL FUMARATE [Concomitant]
     Indication: MATERNAL EXPOSURE TIMING UNSPECIFIED
     Route: 064
  4. EMTRICITABINE W/TENOFOVIR DISOPROXIL FUMARATE [Concomitant]
     Route: 063

REACTIONS (2)
  - Premature baby [Unknown]
  - Foetal exposure during pregnancy [Unknown]
